FAERS Safety Report 11360850 (Version 3)
Quarter: 2016Q4

REPORT INFORMATION
  Report Type: Report from Study
  Country: GB (occurrence: GB)
  Receive Date: 20150810
  Receipt Date: 20161031
  Transmission Date: 20170206
  Serious: Yes (Hospitalization)
  Sender: FDA-Public Use
  Company Number: GB-BEH-2015052498

PATIENT
  Age: 33 Year
  Sex: Female

DRUGS (2)
  1. RIASTAP [Suspect]
     Active Substance: FIBRINOGEN HUMAN
     Indication: POSTPARTUM HAEMORRHAGE
     Route: 065
     Dates: start: 20130921, end: 20130921
  2. BLINDED PLACEBO [Suspect]
     Active Substance: INVESTIGATIONAL PRODUCT
     Indication: POSTPARTUM HAEMORRHAGE
     Route: 065
     Dates: start: 20130921, end: 20130921

REACTIONS (6)
  - Hyperhidrosis [Recovered/Resolved]
  - Lower respiratory tract infection [Recovered/Resolved]
  - Ovarian vein thrombosis [Recovered/Resolved]
  - Chest pain [Recovered/Resolved]
  - Dyspnoea [Recovered/Resolved]
  - Body temperature increased [Recovered/Resolved]

NARRATIVE: CASE EVENT DATE: 20130921
